FAERS Safety Report 4564416-5 (Version None)
Quarter: 2005Q1

REPORT INFORMATION
  Report Type: 
  Country: None (occurrence: None)
  Receive Date: 20050128
  Receipt Date: 20040113
  Transmission Date: 20050727
  Serious: No
  Sender: FDA-Public Use
  Company Number: US-GLAXOSMITHKLINE-A0493982A

PATIENT
  Sex: Male

DRUGS (8)
  1. EPIVIR [Suspect]
     Indication: ACQUIRED IMMUNODEFICIENCY SYNDROME
     Dosage: 150MG TWICE PER DAY
     Route: 048
  2. VIRAMUNE [Concomitant]
  3. KLONOPIN [Concomitant]
  4. SEROQUEL [Concomitant]
  5. AMBIEN [Concomitant]
  6. WELLBUTRIN [Concomitant]
  7. RISPERDAL [Concomitant]
  8. PRILOSEC [Concomitant]

REACTIONS (2)
  - ALOPECIA [None]
  - LIPODYSTROPHY ACQUIRED [None]
